FAERS Safety Report 12444257 (Version 2)
Quarter: 2016Q3

REPORT INFORMATION
  Report Type: Spontaneous
  Country: US (occurrence: US)
  Receive Date: 20160607
  Receipt Date: 20160912
  Transmission Date: 20161109
  Serious: No
  Sender: FDA-Public Use
  Company Number: US-SA-2016SA091263

PATIENT
  Age: 87 Year
  Sex: Female

DRUGS (7)
  1. LANTUS [Concomitant]
     Active Substance: INSULIN GLARGINE
     Dosage: 19 UNITS IN THE MORNING AND 6 UNITS AT NIGHT
  2. TOUJEO [Suspect]
     Active Substance: INSULIN GLARGINE
     Indication: TYPE 1 DIABETES MELLITUS
     Dosage: DOSE: 22 -26UNITS
     Route: 065
     Dates: start: 201603
  3. NOVOLOG [Concomitant]
     Active Substance: INSULIN ASPART
     Route: 065
  4. HUMALOG [Concomitant]
     Active Substance: INSULIN LISPRO
     Dosage: 25-30 UNITS A DAY
  5. TOUJEO [Suspect]
     Active Substance: INSULIN GLARGINE
     Indication: TYPE 1 DIABETES MELLITUS
     Dosage: DOSE:30 UNIT(S)
     Route: 065
     Dates: start: 2016
  6. SOLOSTAR [Concomitant]
     Active Substance: DEVICE
     Dates: start: 201603
  7. NOVOLOG [Concomitant]
     Active Substance: INSULIN ASPART
     Dosage: DOSE:9 UNIT(S)
     Route: 065

REACTIONS (1)
  - Blood glucose fluctuation [Unknown]
